FAERS Safety Report 4733488-7 (Version None)
Quarter: 2005Q3

REPORT INFORMATION
  Report Type: 
  Country: None (occurrence: None)
  Receive Date: 20050725
  Receipt Date: 20040823
  Transmission Date: 20060218
  Serious: Yes (Death)
  Sender: FDA-Public Use
  Company Number: USA-2003-0010212

PATIENT
  Age: 44 Year
  Sex: Male
  Weight: 81.2 kg

DRUGS (7)
  1. MS CONTIN [Suspect]
  2. PERCOCET [Suspect]
  3. FENTANYL [Suspect]
  4. MEPROBAMATE [Suspect]
  5. PROMETHAZINE [Suspect]
  6. CLONAZEPAM [Concomitant]
  7. CARISOPRODOL [Concomitant]

REACTIONS (2)
  - ACCIDENTAL OVERDOSE [None]
  - MULTIPLE DRUG OVERDOSE [None]
